FAERS Safety Report 9528286 (Version 3)
Quarter: 2014Q1

REPORT INFORMATION
  Report Type: Spontaneous
  Country: US (occurrence: US)
  Receive Date: 20130917
  Receipt Date: 20140219
  Transmission Date: 20141002
  Serious: Yes (Hospitalization)
  Sender: FDA-Public Use
  Company Number: US-BAYER-2013-112010

PATIENT
  Age: 35 Year
  Sex: Female
  Weight: 99.77 kg

DRUGS (3)
  1. YAZ [Suspect]
     Indication: ACNE
     Dosage: UNK
     Dates: start: 2009, end: 2011
  2. BEYAZ [Suspect]
     Dosage: UNK
  3. ALEVE [Concomitant]
     Dosage: 500 MG, UNK
     Dates: start: 2008, end: 2011

REACTIONS (4)
  - Deep vein thrombosis [Recovered/Resolved]
  - Injury [None]
  - Pain [None]
  - Pain [None]
